FAERS Safety Report 11617669 (Version 2)
Quarter: 2016Q1

REPORT INFORMATION
  Report Type: Report from Study
  Country: US (occurrence: US)
  Receive Date: 20151009
  Receipt Date: 20160128
  Transmission Date: 20160525
  Serious: No
  Sender: FDA-Public Use
  Company Number: US-GLAXOSMITHKLINE-US2015GSK144306

PATIENT
  Sex: Female

DRUGS (1)
  1. RAXIBACUMAB SOLUTION FOR INJECTION [Suspect]
     Active Substance: RAXIBACUMAB
     Indication: BACTERIAL INFECTION
     Dosage: UNK
     Dates: start: 20150903

REACTIONS (1)
  - Exposure during pregnancy [Unknown]
